FAERS Safety Report 5921284-4 (Version None)
Quarter: 2008Q4

REPORT INFORMATION
  Report Type: 
  Country: None (occurrence: None)
  Receive Date: 20081014
  Receipt Date: 20080925
  Transmission Date: 20090506
  Serious: Yes (Other)
  Sender: FDA-Public Use
  Company Number: 8037685

PATIENT
  Age: 35 Year
  Sex: Male

DRUGS (8)
  1. PREDNISOLONE [Suspect]
     Indication: ERYTHEMA NODOSUM LEPROSUM
  2. PREDNISOLONE [Suspect]
     Indication: ERYTHEMA NODOSUM LEPROSUM
     Dosage: 60 MG/D
  3. PREDNISOLONE [Suspect]
     Indication: ERYTHEMA NODOSUM LEPROSUM
  4. PREDNISOLONE [Suspect]
     Indication: ERYTHEMA NODOSUM LEPROSUM
     Dosage: 20 MG/D
  5. THALIDOMIDE [Suspect]
     Indication: ERYTHEMA NODOSUM LEPROSUM
     Dosage: 300 MG/D
  6. THALIDOMIDE [Suspect]
     Indication: ERYTHEMA NODOSUM LEPROSUM
     Dosage: 200 MG/D
  7. THALIDOMIDE [Suspect]
     Indication: ERYTHEMA NODOSUM LEPROSUM
     Dosage: 100 MG/D
  8. THALIDOMIDE [Suspect]
     Indication: ERYTHEMA NODOSUM LEPROSUM
     Dosage: 50 MG/D

REACTIONS (1)
  - VENOUS THROMBOSIS [None]
